FAERS Safety Report 20246676 (Version 3)
Quarter: 2022Q2

REPORT INFORMATION
  Report Type: Spontaneous
  Country: PT (occurrence: PT)
  Receive Date: 20211229
  Receipt Date: 20220407
  Transmission Date: 20220721
  Serious: Yes (Life-Threatening, Hospitalization, Other)
  Sender: FDA-Public Use
  Company Number: PT-KERNPHARMA-20211518

PATIENT
  Age: 66 Year
  Sex: Female

DRUGS (8)
  1. CLOPIDOGREL BISULFATE [Suspect]
     Active Substance: CLOPIDOGREL BISULFATE
     Indication: Intracardiac thrombus
     Dosage: UNK
  2. CLOPIDOGREL BISULFATE [Suspect]
     Active Substance: CLOPIDOGREL BISULFATE
     Indication: Congestive cardiomyopathy
  3. CLOPIDOGREL BISULFATE [Suspect]
     Active Substance: CLOPIDOGREL BISULFATE
     Indication: Anticoagulant therapy
  4. APIXABAN [Suspect]
     Active Substance: APIXABAN
     Indication: Intracardiac thrombus
  5. APIXABAN [Suspect]
     Active Substance: APIXABAN
     Indication: Cerebrovascular accident prophylaxis
  6. APIXABAN [Suspect]
     Active Substance: APIXABAN
     Indication: Hypocoagulable state
  7. APIXABAN [Suspect]
     Active Substance: APIXABAN
     Indication: Anticoagulant therapy
  8. APIXABAN [Suspect]
     Active Substance: APIXABAN
     Indication: Congestive cardiomyopathy

REACTIONS (6)
  - Embolic stroke [Recovered/Resolved]
  - Drug resistance [Unknown]
  - Cardiomegaly [Unknown]
  - Cerebrovascular accident [Recovered/Resolved]
  - Speech disorder [Recovered/Resolved]
  - Gait disturbance [Recovered/Resolved]
